FAERS Safety Report 7997043-8 (Version None)
Quarter: 2011Q4

REPORT INFORMATION
  Report Type: 
  Country: None (occurrence: None)
  Receive Date: 20111216
  Receipt Date: 20111202
  Transmission Date: 20120403
  Serious: Yes (Hospitalization)
  Sender: FDA-Public Use
  Company Number: 1000026146

PATIENT
  Age: 83 Year
  Sex: Male

DRUGS (13)
  1. ZOLADEX [Concomitant]
  2. POTASSIUM CHLORIDE [Concomitant]
  3. ZYRTEC [Concomitant]
  4. QUESTRAN LOC (COLESTYRAMINE) [Concomitant]
  5. TAMSULOSIN HCL [Concomitant]
  6. ESIDRIX [Concomitant]
  7. ROFLUMILAST (ROFLUMILAST) (TABLETS) [Suspect]
     Indication: CHRONIC OBSTRUCTIVE PULMONARY DISEASE
     Dosage: 500 MCG (500 MCG, 1 IN 1 D), ORAL
     Route: 048
     Dates: start: 20111109, end: 20111118
  8. ANDROCUR (CYPROTERONE ACETATE) [Concomitant]
  9. BETOLVEX (CYANOCOBALAMIN) [Concomitant]
  10. ROFLUMILAST (ROFLUMILAST) (TABLETS) [Suspect]
     Indication: CHRONIC OBSTRUCTIVE PULMONARY DISEASE
     Dosage: ORAL
     Route: 048
  11. SOMAC (PANTOPRAZOLE SODIUM SESQUIHYDRATE) [Concomitant]
  12. VENTOLIN [Concomitant]
  13. SERETIDE DISKUS (SALMETEROL, FLUTICASONE) [Concomitant]

REACTIONS (5)
  - ATRIAL TACHYCARDIA [None]
  - GENERAL PHYSICAL HEALTH DETERIORATION [None]
  - ATRIAL FIBRILLATION [None]
  - PALPITATIONS [None]
  - BLOOD PRESSURE INCREASED [None]
